FAERS Safety Report 12299234 (Version 1)
Quarter: 2016Q2

REPORT INFORMATION
  Report Type: Spontaneous
  Country: US (occurrence: None)
  Receive Date: 20160422
  Receipt Date: 20160422
  Transmission Date: 20160815
  Serious: Yes (Hospitalization)
  Sender: FDA-Public Use
  Company Number: None

PATIENT
  Age: 16 Year
  Sex: Female
  Weight: 90.27 kg

DRUGS (1)
  1. PROPOFOL. [Suspect]
     Active Substance: PROPOFOL
     Indication: SEDATION
     Dosage: 120MG/KG/MIN (10.8G/MIN) CONTINUOUS IV INFUSION
     Route: 042
     Dates: start: 20160306, end: 20160307

REACTIONS (1)
  - Chromaturia [None]

NARRATIVE: CASE EVENT DATE: 20160303
